FAERS Safety Report 24305411 (Version 1)
Quarter: 2024Q3

REPORT INFORMATION
  Report Type: Spontaneous
  Country: US (occurrence: US)
  Receive Date: 20240911
  Receipt Date: 20240911
  Transmission Date: 20241017
  Serious: No
  Sender: TEVA
  Company Number: US-TEVA-VS-3236453

PATIENT
  Age: 78 Year
  Sex: Female
  Weight: 67.13 kg

DRUGS (10)
  1. AUSTEDO XR [Suspect]
     Active Substance: DEUTETRABENAZINE
     Indication: Parkinson^s disease
     Route: 065
  2. ATORVASTATIN [Concomitant]
     Active Substance: ATORVASTATIN
     Indication: Product used for unknown indication
     Dosage: 1 TABLET DAILY
     Route: 065
  3. FAMOTIDINE [Concomitant]
     Active Substance: FAMOTIDINE
     Indication: Product used for unknown indication
     Dosage: 20 MG, 1 TABLET TWICE DAILY
     Route: 065
  4. ROPINIROLE [Concomitant]
     Active Substance: ROPINIROLE
     Indication: Product used for unknown indication
     Dosage: 2 MG, 1 TABLET AT BEDTIME
     Route: 065
  5. TYLENOL [Concomitant]
     Active Substance: ACETAMINOPHEN
     Indication: Arthritis
     Dosage: 1 TABLET TWICE DAILY
     Route: 065
  6. vitamin D3 50 mg [Concomitant]
     Indication: Product used for unknown indication
  7. zinc 50 mg [Concomitant]
     Indication: Product used for unknown indication
  8. Donepezil ODT [Concomitant]
     Indication: Product used for unknown indication
     Dosage: 10 MG, 1 AFTER SUPPER.
     Route: 065
  9. DULOXETINE [Concomitant]
     Active Substance: DULOXETINE
     Indication: Product used for unknown indication
     Route: 065
  10. OMEPRAZOLE [Concomitant]
     Active Substance: OMEPRAZOLE
     Indication: Product used for unknown indication
     Route: 065

REACTIONS (3)
  - Dyskinesia [Unknown]
  - Product dose omission issue [Unknown]
  - Off label use [Unknown]
